FAERS Safety Report 10221525 (Version 1)
Quarter: 2014Q2

REPORT INFORMATION
  Report Type: Spontaneous
  Country: US (occurrence: US)
  Receive Date: 20140606
  Receipt Date: 20140606
  Transmission Date: 20141212
  Serious: Yes (Other)
  Sender: FDA-Public Use
  Company Number: US-JNJFOC-20140600383

PATIENT
  Age: 54 Year
  Sex: Female

DRUGS (3)
  1. INVOKANA [Suspect]
     Indication: TYPE 1 DIABETES MELLITUS
     Route: 048
  2. INVOKANA [Suspect]
     Indication: TYPE 1 DIABETES MELLITUS
     Route: 048
  3. INSULIN [Concomitant]
     Indication: DIABETES MELLITUS

REACTIONS (3)
  - Hallucination, auditory [Recovered/Resolved]
  - Off label use [Not Recovered/Not Resolved]
  - Therapeutic response changed [Unknown]
